FAERS Safety Report 11696063 (Version 1)
Quarter: 2015Q4

REPORT INFORMATION
  Report Type: Spontaneous
  Country: US (occurrence: None)
  Receive Date: 20151103
  Receipt Date: 20151103
  Transmission Date: 20160304
  Serious: Yes (Life-Threatening, Hospitalization, Other)
  Sender: FDA-Public Use
  Company Number: None

PATIENT
  Age: 76 Year
  Sex: Female
  Weight: 83.92 kg

DRUGS (1)
  1. CIMZIA [Suspect]
     Active Substance: CERTOLIZUMAB PEGOL
     Indication: PSORIATIC ARTHROPATHY
     Dosage: TWO INJECTIONS, EVERY TWO WEEKS
     Dates: start: 20150609, end: 20150623

REACTIONS (2)
  - Upper respiratory tract infection [None]
  - Pneumonia [None]

NARRATIVE: CASE EVENT DATE: 20150611
